FAERS Safety Report 26139327 (Version 1)
Quarter: 2025Q4

REPORT INFORMATION
  Report Type: Spontaneous
  Country: EU (occurrence: EU)
  Receive Date: 20251210
  Receipt Date: 20251210
  Transmission Date: 20260117
  Serious: Yes (Other)
  Sender: SANOFI AVENTIS
  Company Number: None

PATIENT
  Age: 72 Year
  Sex: Male
  Weight: 78 kg

DRUGS (4)
  1. OXALIPLATIN [Suspect]
     Active Substance: OXALIPLATIN
     Indication: Adenocarcinoma of colon
     Dosage: 177 MG
     Route: 042
     Dates: start: 20250509, end: 20250509
  2. OXALIPLATIN [Suspect]
     Active Substance: OXALIPLATIN
     Dosage: 177 MG
     Route: 042
     Dates: start: 20250530, end: 20250530
  3. XELODA [Suspect]
     Active Substance: CAPECITABINE
     Indication: Adenocarcinoma of colon
     Dosage: 2500 MG
     Route: 048
     Dates: start: 20250510, end: 20250523
  4. XELODA [Suspect]
     Active Substance: CAPECITABINE
     Dosage: 2500 MG
     Route: 048
     Dates: start: 20250531, end: 20250613

REACTIONS (4)
  - Azotaemia [Recovering/Resolving]
  - Faeces soft [Recovering/Resolving]
  - Blood bilirubin increased [Recovering/Resolving]
  - Diarrhoea [Recovered/Resolved]

NARRATIVE: CASE EVENT DATE: 20250515
